FAERS Safety Report 19953491 (Version 1)
Quarter: 2021Q4

REPORT INFORMATION
  Report Type: Spontaneous
  Country: US (occurrence: US)
  Receive Date: 20211012
  Receipt Date: 20211012
  Transmission Date: 20220303
  Serious: Yes (Life-Threatening)
  Sender: FDA-Public Use
  Company Number: None

PATIENT
  Age: 77 Year
  Sex: Male
  Weight: 96.16 kg

DRUGS (1)
  1. PROTAMINE SULFATE [Suspect]
     Active Substance: PROTAMINE SULFATE
     Indication: Surgery
     Dosage: ?          OTHER ROUTE:IV
     Route: 042
     Dates: start: 20210709, end: 20210709

REACTIONS (11)
  - Dyspnoea [None]
  - Chest discomfort [None]
  - Hypoaesthesia oral [None]
  - Dysphonia [None]
  - Stridor [None]
  - Atrial fibrillation [None]
  - Anaphylactic reaction [None]
  - Tremor [None]
  - Anxiety [None]
  - Hypotension [None]
  - Bradycardia [None]

NARRATIVE: CASE EVENT DATE: 20210709
